FAERS Safety Report 15643447 (Version 3)
Quarter: 2020Q4

REPORT INFORMATION
  Report Type: Spontaneous
  Country: JP (occurrence: JP)
  Receive Date: 20181121
  Receipt Date: 20201023
  Transmission Date: 20210113
  Serious: Yes (Hospitalization, Other)
  Sender: FDA-Public Use
  Company Number: JP-MALLINCKRODT-T201804149

PATIENT
  Age: 10 Year
  Sex: Male
  Weight: 31 kg

DRUGS (8)
  1. OFIRMEV [Suspect]
     Active Substance: ACETAMINOPHEN
     Indication: PAIN
     Dosage: 400 MG, QD
     Route: 042
     Dates: start: 20180324, end: 20180325
  2. CEFOTAXIME SODIUM [Suspect]
     Active Substance: CEFOTAXIME SODIUM
     Indication: STOMATITIS
     Dosage: 3 GRAM, QD
     Route: 042
     Dates: start: 20180324, end: 20180325
  3. ACICLOVIR [Suspect]
     Active Substance: ACYCLOVIR
     Indication: HERPES VIRUS INFECTION
  4. ACICLOVIR [Suspect]
     Active Substance: ACYCLOVIR
     Indication: STOMATITIS
     Dosage: 600 MILLIGRAM, QD
     Route: 041
     Dates: start: 20180324, end: 20180325
  5. ACETAMINOPHEN. [Suspect]
     Active Substance: ACETAMINOPHEN
     Indication: PAIN
     Dosage: 900 MG, QD, FGR
     Route: 048
     Dates: start: 20180322, end: 20180324
  6. DEXAMETHASONE. [Concomitant]
     Active Substance: DEXAMETHASONE
     Indication: STOMATITIS
     Dosage: UNK, OIT
     Route: 062
     Dates: start: 20180320, end: 20180322
  7. ACICLOVIR [Suspect]
     Active Substance: ACYCLOVIR
     Indication: STOMATITIS
     Dosage: 800 MG, QD, POR
     Route: 048
     Dates: start: 20180322, end: 20180324
  8. CEFOTAXIME SODIUM [Suspect]
     Active Substance: CEFOTAXIME SODIUM
     Indication: BACTERIAL INFECTION

REACTIONS (1)
  - Stevens-Johnson syndrome [Recovering/Resolving]

NARRATIVE: CASE EVENT DATE: 20180325
